FAERS Safety Report 17026941 (Version 1)
Quarter: 2019Q4

REPORT INFORMATION
  Report Type: Spontaneous
  Country: SE (occurrence: SE)
  Receive Date: 20191113
  Receipt Date: 20191113
  Transmission Date: 20200122
  Serious: Yes (Life-Threatening)
  Sender: FDA-Public Use
  Company Number: SE-MYLANLABS-2019M1107760

PATIENT
  Age: 63 Year
  Sex: Male

DRUGS (1)
  1. LOSARTAN MYLAN 100 MG FILDRAGERAD TABLETT [Suspect]
     Active Substance: LOSARTAN
     Indication: HYPERTENSION
     Dosage: 100MG: 1 TA PA MORGONEN
     Route: 048
     Dates: start: 20190513

REACTIONS (5)
  - Pruritus [Recovered/Resolved]
  - Dyspnoea [Recovered/Resolved]
  - Oedema [Recovered/Resolved]
  - Hypersensitivity [Recovered/Resolved]
  - Palpitations [Recovered/Resolved]

NARRATIVE: CASE EVENT DATE: 201905
